FAERS Safety Report 5431815-9 (Version None)
Quarter: 2007Q3

REPORT INFORMATION
  Report Type: 
  Country: None (occurrence: None)
  Receive Date: 20070731
  Receipt Date: 20070507
  Transmission Date: 20080115
  Serious: No
  Sender: FDA-Public Use
  Company Number: US200705001943

PATIENT
  Age: 56 Year
  Sex: Female
  Weight: 99.8 kg

DRUGS (4)
  1. BYETTA [Suspect]
     Indication: INSULIN-REQUIRING TYPE II DIABETES MELLITUS
     Dosage: 5 UG, 2/D, SUBCUTANEOUS
     Route: 058
     Dates: end: 20070505
  2. EXENATIDE PEN, DISPOSABLE DEVICE (EXENATIDE PEN) [Concomitant]
  3. ACTOS [Concomitant]
  4. HUMULIN 30/70 (INSULIN HUMAN INJECTION, ISOPHANE) [Concomitant]

REACTIONS (3)
  - ADVERSE EVENT [None]
  - INCREASED APPETITE [None]
  - WEIGHT DECREASED [None]
